FAERS Safety Report 8348366-4 (Version None)
Quarter: 2012Q2

REPORT INFORMATION
  Report Type: 
  Country: None (occurrence: None)
  Receive Date: 20120509
  Receipt Date: 20120507
  Transmission Date: 20120825
  Serious: Yes (Other)
  Sender: FDA-Public Use
  Company Number: KR-PFIZER INC-2012105553

PATIENT
  Sex: Male

DRUGS (3)
  1. LYRICA [Suspect]
     Indication: MUSCULOSKELETAL PAIN
     Dosage: 75 MG, 2X/DAY
     Route: 048
     Dates: start: 20111101, end: 20120503
  2. LYRICA [Suspect]
     Indication: DIABETIC NEUROPATHY
     Dosage: 75 MG, 1X/DAY
     Route: 048
     Dates: start: 20120506
  3. PARAMACET [Concomitant]
     Indication: PAIN

REACTIONS (12)
  - TONGUE HAEMORRHAGE [None]
  - PYREXIA [None]
  - VOMITING [None]
  - SENSATION OF FOREIGN BODY [None]
  - DYSPEPSIA [None]
  - DIARRHOEA [None]
  - ANXIETY [None]
  - PARAESTHESIA ORAL [None]
  - OROPHARYNGEAL PAIN [None]
  - DYSPHAGIA [None]
  - NASOPHARYNGITIS [None]
  - HYPOAESTHESIA [None]
